FAERS Safety Report 16772581 (Version 17)
Quarter: 2022Q1

REPORT INFORMATION
  Report Type: Report from Study
  Country: CN (occurrence: CN)
  Receive Date: 20190904
  Receipt Date: 20220117
  Transmission Date: 20220423
  Serious: Yes (Hospitalization)
  Sender: FDA-Public Use
  Company Number: PHHY2019CN204603

PATIENT
  Age: 73 Year
  Sex: Male
  Weight: 69 kg

DRUGS (27)
  1. ENTRESTO [Suspect]
     Active Substance: SACUBITRIL\VALSARTAN
     Indication: Cardiac failure chronic
     Dosage: 25 MG, BID
     Route: 048
     Dates: start: 20190810, end: 20190816
  2. ENTRESTO [Suspect]
     Active Substance: SACUBITRIL\VALSARTAN
     Indication: Cardiac ventricular disorder
     Dosage: 25 MG, BID
     Route: 048
     Dates: start: 20190816, end: 20191018
  3. ENTRESTO [Suspect]
     Active Substance: SACUBITRIL\VALSARTAN
     Dosage: 25 MG
     Route: 048
     Dates: start: 20190817, end: 20190918
  4. ENTRESTO [Suspect]
     Active Substance: SACUBITRIL\VALSARTAN
     Dosage: 50 MG
     Route: 048
     Dates: start: 20190918
  5. ENTRESTO [Suspect]
     Active Substance: SACUBITRIL\VALSARTAN
     Dosage: 50 MG
     Route: 048
     Dates: start: 20190919, end: 20200909
  6. ENTRESTO [Suspect]
     Active Substance: SACUBITRIL\VALSARTAN
     Dosage: 50 MG, BID
     Route: 048
     Dates: start: 20191018
  7. ENTRESTO [Suspect]
     Active Substance: SACUBITRIL\VALSARTAN
     Dosage: 100 MG
     Route: 048
     Dates: start: 20200909
  8. DIGOXIN [Concomitant]
     Active Substance: DIGOXIN
     Indication: Cardiac failure
     Dosage: 0.125 MG
     Route: 048
     Dates: start: 20190804, end: 20190827
  9. DIGOXIN [Concomitant]
     Active Substance: DIGOXIN
     Dosage: 0.5 DF (0.25 MG), QD
     Route: 048
     Dates: start: 20191018
  10. FUROSEMIDE [Concomitant]
     Active Substance: FUROSEMIDE
     Indication: Cardiac failure
     Dosage: 20 MG
     Route: 048
     Dates: start: 20190805, end: 20200707
  11. FUROSEMIDE [Concomitant]
     Active Substance: FUROSEMIDE
     Indication: Diuretic therapy
     Dosage: 20 MG
     Route: 048
     Dates: start: 20190816
  12. SPIRONOLACTONE [Concomitant]
     Active Substance: SPIRONOLACTONE
     Indication: Cardiac failure
     Dosage: 20 MG
     Route: 048
     Dates: start: 20190804
  13. SPIRONOLACTONE [Concomitant]
     Active Substance: SPIRONOLACTONE
     Indication: Diuretic therapy
     Dosage: 20 MG
     Route: 048
     Dates: start: 20190816
  14. SPIRONOLACTONE [Concomitant]
     Active Substance: SPIRONOLACTONE
     Indication: Pre-existing disease
  15. METOPROLOL [Concomitant]
     Active Substance: METOPROLOL
     Indication: Pre-existing disease
     Dosage: 23.75 MG
     Route: 048
     Dates: start: 20190805, end: 20190917
  16. METOPROLOL [Concomitant]
     Active Substance: METOPROLOL
     Dosage: 11.875 MG
     Route: 048
     Dates: start: 20190812
  17. METOPROLOL [Concomitant]
     Active Substance: METOPROLOL
     Dosage: 0.5 DF (47.5 MG), QD
     Route: 048
     Dates: start: 20191018
  18. METOPROLOL [Concomitant]
     Active Substance: METOPROLOL
     Dosage: 47.5 MG
     Route: 048
     Dates: start: 20190918, end: 20191017
  19. METOPROLOL [Concomitant]
     Active Substance: METOPROLOL
     Dosage: 23.75 MG
     Route: 048
     Dates: end: 20200117
  20. METHOXYPHENAMINE [Concomitant]
     Active Substance: METHOXYPHENAMINE
     Indication: Product used for unknown indication
     Dosage: 2 DF, TID (AFTER MEALS)
     Route: 048
     Dates: start: 20191018, end: 20200329
  21. CARBOCYSTEINE [Concomitant]
     Active Substance: CARBOCYSTEINE
     Indication: Product used for unknown indication
     Dosage: 1 DF (BRANCH), TID
     Route: 048
     Dates: start: 20191018
  22. ROSUVASTATIN [Concomitant]
     Active Substance: ROSUVASTATIN
     Indication: Product used for unknown indication
     Dosage: 1 DF, QD (IN EVENING)
     Route: 048
     Dates: start: 20191018
  23. MENTHOL [Concomitant]
     Active Substance: MENTHOL
     Indication: Adverse event
     Dosage: 0.01 PIECE
     Route: 065
     Dates: start: 20190918
  24. AMBROXOL [Concomitant]
     Active Substance: AMBROXOL
     Indication: Adverse event
     Dosage: 0.1 BOTTLE
     Route: 048
     Dates: start: 20200118
  25. PERINDOPRIL [Concomitant]
     Active Substance: PERINDOPRIL
     Indication: Pre-existing disease
     Dosage: 4 MG
     Route: 048
     Dates: start: 20190804, end: 20190811
  26. CLOPIDOGREL [Concomitant]
     Active Substance: CLOPIDOGREL BISULFATE
     Indication: Pre-existing disease
     Dosage: 50 MG
     Route: 048
     Dates: start: 20190816, end: 20190906
  27. POTASSIUM CHLORIDE [Concomitant]
     Active Substance: POTASSIUM CHLORIDE
     Indication: Mineral supplementation
     Dosage: 0.5 MG
     Route: 048
     Dates: start: 20190816, end: 20191104

REACTIONS (10)
  - Epistaxis [Recovered/Resolved]
  - Gastritis [Not Recovered/Not Resolved]
  - Chronic sinusitis [Not Recovered/Not Resolved]
  - Arteriosclerosis [Not Recovered/Not Resolved]
  - Blood pressure systolic increased [Unknown]
  - Gastrooesophageal reflux disease [Not Recovered/Not Resolved]
  - Laryngitis [Recovered/Resolved]
  - Bronchitis [Recovered/Resolved]
  - Bronchitis [Recovered/Resolved]
  - Prescribed underdose [Unknown]

NARRATIVE: CASE EVENT DATE: 20190816
